FAERS Safety Report 19170238 (Version 2)
Quarter: 2022Q1

REPORT INFORMATION
  Report Type: Spontaneous
  Country: US (occurrence: US)
  Receive Date: 20210422
  Receipt Date: 20220216
  Transmission Date: 20220424
  Serious: Yes (Other)
  Sender: FDA-Public Use
  Company Number: US-PFIZER INC-2021348782

PATIENT
  Age: 78 Year
  Sex: Female

DRUGS (2)
  1. IBRANCE [Suspect]
     Active Substance: PALBOCICLIB
     Indication: Breast cancer female
     Dosage: 100 MG
  2. IBRANCE [Suspect]
     Active Substance: PALBOCICLIB
     Dosage: 75 MG
     Dates: start: 20211231

REACTIONS (14)
  - Diabetes mellitus [Unknown]
  - Pain [Unknown]
  - Diarrhoea [Unknown]
  - Weight decreased [Unknown]
  - Withdrawal syndrome [Unknown]
  - Abdominal pain upper [Unknown]
  - Vomiting [Unknown]
  - Illness [Unknown]
  - Feeling abnormal [Unknown]
  - Neoplasm progression [Unknown]
  - Abdominal discomfort [Unknown]
  - Hypertension [Unknown]
  - Back pain [Unknown]
  - Spinal pain [Unknown]
